FAERS Safety Report 8835827 (Version 1)
Quarter: 2012Q4

REPORT INFORMATION
  Report Type: 
  Country: JP (occurrence: JP)
  Receive Date: 20121011
  Receipt Date: 20121011
  Transmission Date: 20130627
  Serious: Yes (Hospitalization)
  Sender: FDA-Public Use
  Company Number: JP-ASTELLAS-2012JP009448

PATIENT
  Age: 60 Year
  Sex: Male
  Weight: 51 kg

DRUGS (4)
  1. FUNGUARD [Suspect]
     Dosage: UNK
     Route: 041
  2. INSULIN [Concomitant]
     Indication: DIABETES MELLITUS
     Route: 065
  3. FLUCONAZOLE [Concomitant]
     Indication: URINARY TRACT INFECTION FUNGAL
     Route: 048
  4. FLUCONAZOLE [Concomitant]
     Route: 048

REACTIONS (2)
  - Trichosporon infection [Unknown]
  - Urinary tract infection fungal [Unknown]
